FAERS Safety Report 4978821-6 (Version None)
Quarter: 2006Q2

REPORT INFORMATION
  Report Type: 
  Country: None (occurrence: None)
  Receive Date: 20060417
  Receipt Date: 20060411
  Transmission Date: 20061013
  Serious: Yes (Death)
  Sender: FDA-Public Use
  Company Number: 2006-04-0529

PATIENT
  Age: 50 Year

DRUGS (2)
  1. TEMODAL [Suspect]
     Indication: GLIOMA
     Dosage: ORAL
     Route: 048
  2. VM-26 [Concomitant]

REACTIONS (1)
  - DEATH [None]
